FAERS Safety Report 7201967-9 (Version None)
Quarter: 2010Q4

REPORT INFORMATION
  Report Type: 
  Country: None (occurrence: None)
  Receive Date: 20101229
  Receipt Date: 20101221
  Transmission Date: 20110411
  Serious: Yes (Other)
  Sender: FDA-Public Use
  Company Number: US-US-EMD SERONO, INC.-7033147

PATIENT
  Sex: Female

DRUGS (2)
  1. REBIF [Suspect]
     Indication: PRODUCT USED FOR UNKNOWN INDICATION
     Route: 058
     Dates: start: 20101029
  2. IBUPROFEN [Concomitant]
     Indication: PREMEDICATION

REACTIONS (8)
  - APHONIA [None]
  - BRONCHITIS [None]
  - FATIGUE [None]
  - INJECTION SITE ERYTHEMA [None]
  - INJECTION SITE PAIN [None]
  - LETHARGY [None]
  - THROAT TIGHTNESS [None]
  - TONSILLAR INFLAMMATION [None]
